FAERS Safety Report 5062098-X (Version None)
Quarter: 2006Q3

REPORT INFORMATION
  Report Type: 
  Country: None (occurrence: None)
  Receive Date: 20060721
  Receipt Date: 20060713
  Transmission Date: 20061208
  Serious: Yes (Death, Other)
  Sender: FDA-Public Use
  Company Number: 2004076502

PATIENT
  Age: 11 Year
  Sex: Male
  Weight: 52.1637 kg

DRUGS (6)
  1. ZOLOFT [Suspect]
     Indication: ANXIETY DISORDER
     Dosage: 25 MG (25 MG, 1 IN 1 D), ORAL
     Route: 048
     Dates: start: 20020909
  2. ZOLOFT [Suspect]
     Indication: MAJOR DEPRESSION
     Dosage: 25 MG (25 MG, 1 IN 1 D), ORAL
     Route: 048
     Dates: start: 20020909
  3. EFFEXOR XR [Suspect]
     Indication: AGITATION
     Dosage: 37.5 MG (37.5 MG, 1 IN 1 D), ORAL
     Route: 048
     Dates: start: 20021008
  4. EFFEXOR XR [Suspect]
     Indication: ANXIETY DISORDER
     Dosage: 37.5 MG (37.5 MG, 1 IN 1 D), ORAL
     Route: 048
     Dates: start: 20021008
  5. ATIVAN [Concomitant]
  6. ZANTAC [Concomitant]

REACTIONS (14)
  - AGITATION [None]
  - ANXIETY [None]
  - COMPLETED SUICIDE [None]
  - CONDITION AGGRAVATED [None]
  - CONVERSION DISORDER [None]
  - DELIRIUM [None]
  - HOSTILITY [None]
  - IMPULSE-CONTROL DISORDER [None]
  - INJURY ASPHYXIATION [None]
  - IRRITABILITY [None]
  - MANIA [None]
  - RESTLESSNESS [None]
  - SCHOOL REFUSAL [None]
  - SUICIDAL IDEATION [None]
